FAERS Safety Report 16007007 (Version 2)
Quarter: 2019Q1

REPORT INFORMATION
  Report Type: Spontaneous
  Country: JP (occurrence: JP)
  Receive Date: 20190226
  Receipt Date: 20190313
  Transmission Date: 20190418
  Serious: Yes (Other)
  Sender: FDA-Public Use
  Company Number: JP-PFIZER INC-2019076755

PATIENT
  Age: 8 Decade
  Sex: Male

DRUGS (2)
  1. METHOTREXATE SODIUM. [Suspect]
     Active Substance: METHOTREXATE SODIUM
     Dosage: 4 CAPSULES IN 2 DIVIDED DOSES, WEEKLY
     Route: 048
  2. SULFASALAZINE (ENTERIC COATED) [Suspect]
     Active Substance: SULFASALAZINE
     Dosage: 500 MG, 1X/DAY, IN THE MORNING
     Route: 048

REACTIONS (1)
  - Anaemia folate deficiency [Not Recovered/Not Resolved]
